FAERS Safety Report 5444824-0 (Version None)
Quarter: 2007Q3

REPORT INFORMATION
  Report Type: 
  Country: None (occurrence: None)
  Receive Date: 20070824
  Receipt Date: 20070813
  Transmission Date: 20080115
  Serious: Yes (Life-Threatening)
  Sender: FDA-Public Use
  Company Number: CHNY2007BR02908

PATIENT
  Age: 50 Year
  Sex: Male
  Weight: 74 kg

DRUGS (1)
  1. CALSAN (NCH) (CALCIUM CARBONATE) TABLET [Suspect]
     Indication: MINERAL SUPPLEMENTATION
     Dosage: 5% OF THE TAB, ORAL
     Route: 048
     Dates: start: 20070810, end: 20070810

REACTIONS (6)
  - ABDOMINAL PAIN [None]
  - DIARRHOEA [None]
  - FEELING ABNORMAL [None]
  - IMPAIRED WORK ABILITY [None]
  - RENAL PAIN [None]
  - VOMITING [None]
